FAERS Safety Report 10196524 (Version 1)
Quarter: 2014Q2

REPORT INFORMATION
  Report Type: Spontaneous
  Country: US (occurrence: None)
  Receive Date: 20140522
  Receipt Date: 20140522
  Transmission Date: 20141212
  Serious: Yes (Other)
  Sender: FDA-Public Use
  Company Number: US-000946

PATIENT
  Sex: Male

DRUGS (2)
  1. GATTEX [Suspect]
     Indication: SHORT-BOWEL SYNDROME
     Dosage: QD, STREN/VOLUM: 0.186 ML/ FREQU: ONCE A DAY
     Route: 058
     Dates: start: 20131017, end: 20140507
  2. SOLUTIONS FOR PARENTERAL NUTRITION [Concomitant]

REACTIONS (3)
  - Drug ineffective [None]
  - Colon cancer [None]
  - Treatment noncompliance [None]
